FAERS Safety Report 7768483-7 (Version None)
Quarter: 2011Q3

REPORT INFORMATION
  Report Type: 
  Country: None (occurrence: None)
  Receive Date: 20110922
  Receipt Date: 20100914
  Transmission Date: 20111222
  Serious: No
  Sender: FDA-Public Use
  Company Number: US-ASTRAZENECA-2010SE43149

PATIENT
  Age: 33 Year
  Sex: Female
  Weight: 89.4 kg

DRUGS (4)
  1. ULTRAM [Concomitant]
  2. SEROQUEL XR [Suspect]
     Indication: BIPOLAR DISORDER
     Route: 048
     Dates: start: 20100910
  3. XANAX [Concomitant]
     Dosage: 3 TIMES PER DAY
  4. XANAX [Concomitant]
     Dosage: 2 TIMES PER DAY

REACTIONS (5)
  - AGGRESSION [None]
  - SOMNAMBULISM [None]
  - IRRITABILITY [None]
  - SLEEP-RELATED EATING DISORDER [None]
  - MALAISE [None]
